FAERS Safety Report 23098007 (Version 2)
Quarter: 2023Q4

REPORT INFORMATION
  Report Type: Spontaneous
  Country: LU (occurrence: LU)
  Receive Date: 20231023
  Receipt Date: 20231105
  Transmission Date: 20240110
  Serious: Yes (Life-Threatening, Hospitalization, Other)
  Sender: FDA-Public Use
  Company Number: None

PATIENT
  Age: 77 Year
  Sex: Female
  Weight: 70 kg

DRUGS (13)
  1. PAXLOVID [Interacting]
     Active Substance: NIRMATRELVIR\RITONAVIR
     Indication: COVID-19 treatment
     Dosage: 1 DF, SINGLE (IN THE EVENING ONE SINGLE INTAKE)
     Route: 048
     Dates: start: 20230917, end: 20230917
  2. NOVALGIN (METAMIZOLE SODIUM) [Suspect]
     Active Substance: METAMIZOLE SODIUM
     Dosage: 1 G, 1X/DAY
     Route: 042
     Dates: start: 20230917, end: 20230917
  3. PREGABALIN [Suspect]
     Active Substance: PREGABALIN
     Dosage: 25 MG, 2X/DAY (FREQ:12 H)
     Route: 048
     Dates: start: 20230822, end: 20230918
  4. RISPERDAL [Suspect]
     Active Substance: RISPERIDONE
     Dosage: 6 ML, 1X/DAY
     Route: 048
     Dates: start: 20230822, end: 20230918
  5. ACETAMINOPHEN [Suspect]
     Active Substance: ACETAMINOPHEN
     Dosage: 3 G, 1X/DAY
     Route: 048
     Dates: start: 20230917, end: 20230918
  6. ACETAMINOPHEN [Suspect]
     Active Substance: ACETAMINOPHEN
     Dosage: 1 G, 1X/DAY
     Route: 048
     Dates: start: 20230919, end: 20230919
  7. PROTHIPENDYL HYDROCHLORIDE [Suspect]
     Active Substance: PROTHIPENDYL HYDROCHLORIDE
     Dosage: 80 MG, 1X/DAY
     Route: 048
     Dates: start: 20230826, end: 20230918
  8. LIPITOR [Interacting]
     Active Substance: ATORVASTATIN CALCIUM
     Dosage: 40 MG, 2X/DAY (FREQ:12 H)
     Route: 048
     Dates: start: 20230822, end: 20230917
  9. ASPIRIN [Concomitant]
     Active Substance: ASPIRIN
     Dosage: 80 MG, 1X/DAY
     Route: 048
  10. LEVOTHYROXINE [Concomitant]
     Active Substance: LEVOTHYROXINE
     Dosage: 50 UG, 1X/DAY
     Route: 048
  11. FLUPENTIXOL DIHYDROCHLORIDE\MELITRACEN HYDROCHLORIDE [Concomitant]
     Active Substance: FLUPENTIXOL DIHYDROCHLORIDE\MELITRACEN HYDROCHLORIDE
     Dosage: 1 DF, 1X/DAY
     Route: 048
  12. ENOXAPARIN [Concomitant]
     Active Substance: ENOXAPARIN
     Dosage: 40 MG, 1X/DAY
     Route: 058
  13. ESOMEPRAZOLE MAGNESIUM [Concomitant]
     Active Substance: ESOMEPRAZOLE\ESOMEPRAZOLE MAGNESIUM\ESOMEPRAZOLE MAGNESIUM DIHYDRATE
     Dosage: 20 MG, 1X/DAY
     Route: 048

REACTIONS (5)
  - Acute kidney injury [Recovering/Resolving]
  - Hepatic cytolysis [Recovered/Resolved]
  - Thrombocytopenia [Unknown]
  - Drug interaction [Recovered/Resolved]
  - Labelled drug-drug interaction medication error [Recovered/Resolved]

NARRATIVE: CASE EVENT DATE: 20230917
